FAERS Safety Report 20745320 (Version 1)
Quarter: 2022Q2

REPORT INFORMATION
  Report Type: Spontaneous
  Country: US (occurrence: US)
  Receive Date: 20220425
  Receipt Date: 20220425
  Transmission Date: 20220721
  Serious: No
  Sender: FDA-Public Use
  Company Number: US-PFIZER INC-202101198815

PATIENT
  Age: 5 Decade
  Sex: Male

DRUGS (1)
  1. CHANTIX [Suspect]
     Active Substance: VARENICLINE TARTRATE
     Dosage: UNK [TOOK TWO PILLS WITHIN THREE HOURS APART]

REACTIONS (4)
  - Irritability [Unknown]
  - Memory impairment [Unknown]
  - Anger [Unknown]
  - Extra dose administered [Unknown]
